FAERS Safety Report 6252884-2 (Version None)
Quarter: 2009Q2

REPORT INFORMATION
  Report Type: 
  Country: None (occurrence: None)
  Receive Date: 20090629
  Receipt Date: 20090619
  Transmission Date: 20091009
  Serious: Yes (Hospitalization)
  Sender: FDA-Public Use
  Company Number: 2009SP001468

PATIENT
  Sex: Male

DRUGS (8)
  1. LUNESTA [Suspect]
     Indication: INSOMNIA
     Dosage: 3 MG; HS; ORAL
     Route: 048
     Dates: start: 20050607
  2. B COMPLEX /00212701/ [Concomitant]
  3. GARLIC /01570501/ [Concomitant]
  4. MULTI-VITAMINS [Concomitant]
  5. OMEGA /00694402/ [Concomitant]
  6. HERBAL PREPARATION [Concomitant]
  7. DIPHENHYDRAMINE HYDROCHLORIDE [Concomitant]
  8. AMBIEN [Concomitant]

REACTIONS (8)
  - ABDOMINAL ADHESIONS [None]
  - FATIGUE [None]
  - INCORRECT DOSE ADMINISTERED [None]
  - INITIAL INSOMNIA [None]
  - INTUSSUSCEPTION [None]
  - LIPOMA [None]
  - MIDDLE INSOMNIA [None]
  - SLEEP DISORDER [None]
